FAERS Safety Report 24227666 (Version 1)
Quarter: 2024Q3

REPORT INFORMATION
  Report Type: Spontaneous
  Country: US (occurrence: US)
  Receive Date: 20240820
  Receipt Date: 20240820
  Transmission Date: 20241016
  Serious: No
  Sender: TEVA
  Company Number: US-TEVA-VS-3229735

PATIENT
  Age: 18 Year
  Sex: Female

DRUGS (1)
  1. FLUDROCORTISONE ACETATE [Suspect]
     Active Substance: FLUDROCORTISONE ACETATE
     Indication: Product used for unknown indication
     Route: 065

REACTIONS (7)
  - Circumstance or information capable of leading to medication error [Unknown]
  - Headache [Unknown]
  - Diarrhoea [Unknown]
  - Weight increased [Unknown]
  - Abdominal distension [Unknown]
  - Hyperphagia [Unknown]
  - Food allergy [Unknown]
